FAERS Safety Report 9103419 (Version 1)
Quarter: 2013Q1

REPORT INFORMATION
  Report Type: Report from Study
  Country: FR (occurrence: FR)
  Receive Date: 20130219
  Receipt Date: 20130219
  Transmission Date: 20140127
  Serious: Yes (Other)
  Sender: FDA-Public Use
  Company Number: FR-BRISTOL-MYERS SQUIBB COMPANY-17384835

PATIENT
  Age: 50 Year
  Sex: Male

DRUGS (3)
  1. CETUXIMAB [Suspect]
     Indication: HEAD AND NECK CANCER
     Dosage: RECENT INF:30APR12
     Route: 042
     Dates: start: 20120326
  2. CARBOPLATIN [Suspect]
     Indication: HEAD AND NECK CANCER
     Dosage: RECENT INF:26APR12
     Route: 042
     Dates: start: 20120402
  3. FLUOROURACIL [Suspect]
     Indication: HEAD AND NECK CANCER
     Dosage: RECENT INF:26APR12
     Route: 042
     Dates: start: 20120402

REACTIONS (8)
  - Bone marrow failure [Unknown]
  - Septic shock [Unknown]
  - Sepsis [Unknown]
  - Mucosal inflammation [Unknown]
  - Dysphagia [Unknown]
  - Aphagia [Unknown]
  - Dehydration [Unknown]
  - Weight decreased [Unknown]
